FAERS Safety Report 23393915 (Version 1)
Quarter: 2024Q1

REPORT INFORMATION
  Report Type: Spontaneous
  Country: US (occurrence: US)
  Receive Date: 20240111
  Receipt Date: 20240111
  Transmission Date: 20240409
  Serious: No
  Sender: FDA-Public Use
  Company Number: US-PFIZER INC-202400009319

PATIENT
  Age: 8 Year
  Sex: Female

DRUGS (1)
  1. XELJANZ [Suspect]
     Active Substance: TOFACITINIB CITRATE
     Dosage: 4 ML, 2X/DAY
     Route: 048
     Dates: start: 20230322

REACTIONS (1)
  - Drug effect less than expected [Unknown]
